FAERS Safety Report 20699383 (Version 1)
Quarter: 2022Q2

REPORT INFORMATION
  Report Type: Spontaneous
  Country: US (occurrence: None)
  Receive Date: 20220409
  Receipt Date: 20220409
  Transmission Date: 20220720
  Serious: Yes (Hospitalization)
  Sender: FDA-Public Use
  Company Number: None

PATIENT
  Age: 45 Year
  Sex: Female
  Weight: 83.25 kg

DRUGS (8)
  1. GAMMAPLEX [Suspect]
     Active Substance: HUMAN IMMUNOGLOBULIN G
     Indication: Myotonia
     Dosage: FREQUENCY : MONTHLY;?
     Route: 042
     Dates: start: 20220328, end: 20220331
  2. GAMMAPLEX [Suspect]
     Active Substance: HUMAN IMMUNOGLOBULIN G
     Indication: Myotonia
     Dosage: FREQUENCY : MONTHLY;?
     Route: 042
     Dates: start: 20220328, end: 20220331
  3. TRAMADOL [Concomitant]
  4. TYLENOL [Concomitant]
  5. benadryl [Concomitant]
  6. DIAZEPAM [Concomitant]
  7. myrbetriq ER [Concomitant]
  8. MOVANTIK [Concomitant]

REACTIONS (3)
  - Headache [None]
  - Crying [None]
  - Pain [None]

NARRATIVE: CASE EVENT DATE: 20220331
